FAERS Safety Report 19620463 (Version 1)
Quarter: 2021Q3

REPORT INFORMATION
  Report Type: Report from Study
  Country: JP (occurrence: JP)
  Receive Date: 20210728
  Receipt Date: 20210728
  Transmission Date: 20211014
  Serious: Yes (Hospitalization)
  Sender: FDA-Public Use
  Company Number: JP-ROCHE-2782347

PATIENT
  Age: 75 Year
  Sex: Female
  Weight: 42 kg

DRUGS (16)
  1. BEVACIZUMAB. [Suspect]
     Active Substance: BEVACIZUMAB
     Route: 041
     Dates: start: 20200918, end: 20200918
  2. ILUAMIX [Concomitant]
     Indication: HYPERTENSION
     Dosage: BEGINNING OF DOSAGE DAY: TRIAL BEGINNING FORMER
     Route: 048
  3. ATORVASTATIN [Concomitant]
     Active Substance: ATORVASTATIN
     Indication: DYSLIPIDAEMIA
     Route: 048
     Dates: start: 20191007
  4. PEMETREXED DISODIUM [Suspect]
     Active Substance: PEMETREXED DISODIUM
     Indication: LUNG ADENOCARCINOMA
     Dosage: DOSE: 630 MG
     Route: 041
     Dates: start: 20190516, end: 20210129
  5. BEVACIZUMAB. [Suspect]
     Active Substance: BEVACIZUMAB
     Route: 041
     Dates: start: 20200605, end: 20201211
  6. BEVACIZUMAB. [Suspect]
     Active Substance: BEVACIZUMAB
     Indication: LUNG ADENOCARCINOMA
     Dosage: DOSE: 574 MG
     Route: 041
     Dates: start: 20190516, end: 20200717
  7. ATEZOLIZUMAB. [Suspect]
     Active Substance: ATEZOLIZUMAB
     Indication: LUNG ADENOCARCINOMA
     Route: 041
     Dates: start: 20190516, end: 20210129
  8. PEMETREXED DISODIUM [Suspect]
     Active Substance: PEMETREXED DISODIUM
     Dosage: DOSE: 655 MG
     Route: 041
     Dates: start: 20200605, end: 20210129
  9. DENOTAS [Concomitant]
     Active Substance: CALCIUM CARBONATE\CHOLECALCIFEROL\MAGNESIUM CARBONATE
     Indication: HYPOCALCAEMIA
     Dosage: BEGINNING OF DOSAGE DAY: TRIAL BEGINNING FORMER
     Route: 048
  10. NEXIUM [Concomitant]
     Active Substance: ESOMEPRAZOLE MAGNESIUM
     Indication: PROPHYLAXIS AGAINST GASTROINTESTINAL ULCER
     Dosage: BEGINNING OF DOSAGE DAY: TRIAL BEGINNING FORMER
     Route: 048
  11. BEVACIZUMAB. [Suspect]
     Active Substance: BEVACIZUMAB
     Route: 041
     Dates: start: 20201211, end: 20201211
  12. ERLOTINIB [Suspect]
     Active Substance: ERLOTINIB
     Indication: LUNG ADENOCARCINOMA
     Dosage: 150 MILLIGRAM, QD
     Route: 048
     Dates: start: 20210518, end: 20210702
  13. RANMARK [Concomitant]
     Active Substance: DENOSUMAB
     Indication: LUNG ADENOCARCINOMA
     Dosage: BEGINNING OF DOSAGE DAY: TRIAL BEGINNING FORMER
     Route: 058
  14. AZUNOL GARGLE LIQUID [Concomitant]
     Active Substance: SODIUM GUALENATE MONOHYDRATE
     Indication: INFECTION PROPHYLAXIS
     Dosage: ...PROPER QUANTITY.. PROPERLY, BEGINNING OF DOSAGE DAY: TRIAL BEGINNING FORMER
  15. CARBOPLATIN. [Suspect]
     Active Substance: CARBOPLATIN
     Indication: LUNG ADENOCARCINOMA
     Dosage: AUC 5 (DAY 1) DIV
     Route: 041
     Dates: start: 20190516, end: 20190719
  16. AZUNOL [Concomitant]
     Indication: ORAL PAIN
     Dosage: PROPER QUANTITY AND BEGINNING OF DOSAGE DAY: TRIAL BEGINNING FORMER

REACTIONS (4)
  - Small intestinal haemorrhage [Unknown]
  - Blood creatinine increased [Recovering/Resolving]
  - Gastric ulcer haemorrhage [Unknown]
  - Colitis ulcerative [Not Recovered/Not Resolved]

NARRATIVE: CASE EVENT DATE: 20210129
